FAERS Safety Report 24160598 (Version 3)
Quarter: 2024Q4

REPORT INFORMATION
  Report Type: Spontaneous
  Country: JP (occurrence: JP)
  Receive Date: 20240801
  Receipt Date: 20241003
  Transmission Date: 20250115
  Serious: Yes (Death)
  Sender: SERVIER
  Company Number: JP-SERVIER-S24009590

PATIENT

DRUGS (1)
  1. ONCASPAR [Suspect]
     Active Substance: PEGASPARGASE
     Indication: Acute lymphocytic leukaemia
     Dosage: UNK
     Dates: start: 20240526, end: 20240526

REACTIONS (3)
  - Sepsis [Fatal]
  - Pancreatitis acute [Fatal]
  - Peritonitis [Fatal]

NARRATIVE: CASE EVENT DATE: 20240601
